FAERS Safety Report 24023599 (Version 2)
Quarter: 2024Q3

REPORT INFORMATION
  Report Type: Report from Study
  Country: CN (occurrence: CN)
  Receive Date: 20240627
  Receipt Date: 20240710
  Transmission Date: 20241017
  Serious: No
  Sender: ROCHE
  Company Number: CN-ROCHE-3257015

PATIENT
  Age: 37 Year
  Sex: Female

DRUGS (3)
  1. ALECENSA [Suspect]
     Active Substance: ALECTINIB HYDROCHLORIDE
     Indication: Non-small cell lung cancer metastatic
     Dosage: 224 CAPSULES PER BOX
     Route: 048
     Dates: start: 20221116, end: 202303
  2. ALECENSA [Suspect]
     Active Substance: ALECTINIB HYDROCHLORIDE
     Dosage: 3 CAPSULES, TWICE A DAY BY ORAL, 224 CAPSULES PER BOX
     Route: 048
  3. ALECENSA [Suspect]
     Active Substance: ALECTINIB HYDROCHLORIDE
     Dosage: CAPSULES, 224 CAPSULES PER BOX
     Route: 048
     Dates: start: 202305

REACTIONS (7)
  - Hepatic function abnormal [Recovering/Resolving]
  - Constipation [Unknown]
  - Drug ineffective [Unknown]
  - Drug resistance [Unknown]
  - Chest pain [Unknown]
  - Carbohydrate antigen 125 increased [Unknown]
  - Carbohydrate antigen 15-3 increased [Unknown]
